FAERS Safety Report 22618003 (Version 1)
Quarter: 2023Q2

REPORT INFORMATION
  Report Type: Report from Study
  Country: CN (occurrence: None)
  Receive Date: 20230620
  Receipt Date: 20230620
  Transmission Date: 20230722
  Serious: Yes (Death)
  Sender: FDA-Public Use
  Company Number: 2023A141495

PATIENT
  Age: 53 Year
  Sex: Male
  Weight: 53 kg

DRUGS (2)
  1. SAVOLITINIB [Suspect]
     Active Substance: SAVOLITINIB
     Indication: Non-small cell lung cancer
     Route: 048
     Dates: start: 20220623, end: 20220714
  2. OSIMERTINIB [Suspect]
     Active Substance: OSIMERTINIB
     Indication: Non-small cell lung cancer
     Route: 048
     Dates: start: 20220623, end: 20220714

REACTIONS (1)
  - Death [Fatal]

NARRATIVE: CASE EVENT DATE: 20230608
